FAERS Safety Report 17710256 (Version 1)
Quarter: 2020Q2

REPORT INFORMATION
  Report Type: Spontaneous
  Country: CN (occurrence: CN)
  Receive Date: 20200427
  Receipt Date: 20200427
  Transmission Date: 20200714
  Serious: Yes (Other)
  Sender: FDA-Public Use
  Company Number: CN-ROCHE-2585979

PATIENT
  Age: 49 Year
  Sex: Male

DRUGS (13)
  1. IRINOTECAN [Concomitant]
     Active Substance: IRINOTECAN
     Indication: RECTAL ADENOCARCINOMA
     Route: 042
  2. PREDNISONE. [Concomitant]
     Active Substance: PREDNISONE
     Indication: RECTAL ADENOCARCINOMA
     Route: 048
  3. PEMETREXED. [Concomitant]
     Active Substance: PEMETREXED
     Indication: RECTAL ADENOCARCINOMA
     Route: 042
  4. PEMETREXED. [Concomitant]
     Active Substance: PEMETREXED
     Route: 042
  5. CALCIUM FOLINATE [Concomitant]
     Active Substance: LEUCOVORIN CALCIUM
     Indication: RECTAL ADENOCARCINOMA
     Route: 042
  6. FLUOROURACIL. [Concomitant]
     Active Substance: FLUOROURACIL
     Indication: RECTAL ADENOCARCINOMA
  7. ICOTINIB [Concomitant]
     Active Substance: ICOTINIB
     Indication: RECTAL ADENOCARCINOMA
     Route: 048
  8. OXALIPLATIN. [Concomitant]
     Active Substance: OXALIPLATIN
     Indication: RECTAL ADENOCARCINOMA
     Route: 042
  9. XELODA [Suspect]
     Active Substance: CAPECITABINE
     Indication: RECTAL ADENOCARCINOMA
     Dosage: 2.0,1.5 (UNIT UNKNOWN)
     Route: 048
  10. PREDNISONE. [Concomitant]
     Active Substance: PREDNISONE
     Route: 048
  11. AVASTIN [Suspect]
     Active Substance: BEVACIZUMAB
     Indication: RECTAL ADENOCARCINOMA
     Route: 042
  12. GEFITINIB. [Concomitant]
     Active Substance: GEFITINIB
     Indication: RECTAL ADENOCARCINOMA
  13. METHYLPREDNISOLONE. [Concomitant]
     Active Substance: METHYLPREDNISOLONE
     Indication: RECTAL ADENOCARCINOMA
     Dosage: 200 MG, 80 MG AND 80 MG
     Route: 042

REACTIONS (3)
  - Asthma [Unknown]
  - Interstitial lung disease [Recovered/Resolved]
  - Wheezing [Unknown]
